FAERS Safety Report 21871679 (Version 2)
Quarter: 2024Q2

REPORT INFORMATION
  Report Type: Report from Study
  Country: AU (occurrence: AU)
  Receive Date: 20230117
  Receipt Date: 20240517
  Transmission Date: 20240715
  Serious: Yes (Hospitalization)
  Sender: FDA-Public Use
  Company Number: AU-ABBVIE-4272238

PATIENT
  Age: 76 Year
  Sex: Female

DRUGS (2)
  1. CARBIDOPA\LEVODOPA [Suspect]
     Active Substance: CARBIDOPA\LEVODOPA
     Indication: Parkinson^s disease
     Dosage: DUODOPA 100ML GEL CASSETTE?7ML/HR DAY AND 3 ML/HR NIGHT.
     Route: 050
     Dates: start: 20210716
  2. CARBIDOPA\LEVODOPA [Suspect]
     Active Substance: CARBIDOPA\LEVODOPA

REACTIONS (5)
  - Suicidal ideation [Unknown]
  - Anxiety [Unknown]
  - Depression [Unknown]
  - Panic reaction [Unknown]
  - Drug tolerance [Unknown]

NARRATIVE: CASE EVENT DATE: 20230101
